FAERS Safety Report 9438397 (Version 2)
Quarter: 2013Q3

REPORT INFORMATION
  Report Type: Spontaneous
  Country: JP (occurrence: JP)
  Receive Date: 20130802
  Receipt Date: 20130829
  Transmission Date: 20140515
  Serious: Yes (Hospitalization)
  Sender: FDA-Public Use
  Company Number: JP-B.I. PHARMACEUTICALS,INC./RIDGEFIELD-2013-BI-23046YA

PATIENT
  Age: 61 Year
  Sex: Male

DRUGS (7)
  1. HARNAL (TAMSULOSIN) ORODISPERSABLE CR [Suspect]
     Indication: PRODUCT USED FOR UNKNOWN INDICATION
     Dosage: 0.2 MG
     Route: 048
  2. SOLIFENACIN [Suspect]
     Indication: PRODUCT USED FOR UNKNOWN INDICATION
     Dosage: 5 MG
     Route: 048
     Dates: start: 201212, end: 201304
  3. ZYPREXA (OLANZAPINE) [Concomitant]
  4. RISPERDAL (RISPERIDONE) [Concomitant]
  5. AKINETON [Concomitant]
  6. LIMAS (LITHIUM CARBONATE) [Concomitant]
  7. SILECE (FLUNITRAZEPAM) [Concomitant]

REACTIONS (1)
  - Rhabdomyolysis [Unknown]
